FAERS Safety Report 23517937 (Version 1)
Quarter: 2024Q1

REPORT INFORMATION
  Report Type: Spontaneous
  Country: NL (occurrence: NL)
  Receive Date: 20240213
  Receipt Date: 20240213
  Transmission Date: 20240410
  Serious: Yes (Disabling)
  Sender: FDA-Public Use
  Company Number: None

PATIENT
  Age: 33 Year
  Sex: Female
  Weight: 100 kg

DRUGS (3)
  1. QUETIAPINE [Suspect]
     Active Substance: QUETIAPINE
     Indication: Abnormal dreams
     Dosage: QUETIAPINE TABLET 12.5MG / BRAND NAME NOT SPECIFIED?MEDICINE PRESCRIBED BY DOCTOR: YES
     Route: 065
     Dates: start: 20210720
  2. QUETIAPINE [Suspect]
     Active Substance: QUETIAPINE
     Indication: Abnormal dreams
     Dosage: LATER HALF OR QUARTER ONCE A DAY
     Route: 065
  3. VENLAFAXINE [Suspect]
     Active Substance: VENLAFAXINE HYDROCHLORIDE
     Indication: Depression
     Dosage: VENLAFAXINE CAPSULE MGA 225MG / BRAND NAME NOT SPECIFIED?MEDICINE PRESCRIBED BY DOCTOR: YES
     Route: 065
     Dates: start: 20200901

REACTIONS (3)
  - Fatigue [Recovering/Resolving]
  - Somnolence [Recovering/Resolving]
  - Musculoskeletal stiffness [Not Recovered/Not Resolved]
